FAERS Safety Report 16408781 (Version 2)
Quarter: 2019Q2

REPORT INFORMATION
  Report Type: Spontaneous
  Country: CN (occurrence: CN)
  Receive Date: 20190610
  Receipt Date: 20190613
  Transmission Date: 20190711
  Serious: Yes (Death, Life-Threatening, Other)
  Sender: FDA-Public Use
  Company Number: CN-ROCHE-2323885

PATIENT
  Age: 61 Year
  Sex: Male

DRUGS (16)
  1. IMIPENEM AND CILASTATIN SODIUM [Concomitant]
     Active Substance: CILASTATIN SODIUM\IMIPENEM
     Route: 042
     Dates: start: 20171215
  2. METHYLPREDNISOLONE SODIUM SUCCINATE. [Concomitant]
     Active Substance: METHYLPREDNISOLONE SODIUM SUCCINATE
     Route: 065
  3. ASARONE [Concomitant]
     Active Substance: .ALPHA.-ASARONE
     Route: 042
  4. LANSOPRAZOLE. [Concomitant]
     Active Substance: LANSOPRAZOLE
     Route: 065
  5. FLUCONAZOLE. [Concomitant]
     Active Substance: FLUCONAZOLE
     Route: 042
     Dates: start: 20171217
  6. TAMIFLU [Suspect]
     Active Substance: OSELTAMIVIR PHOSPHATE
     Indication: PROPHYLAXIS
     Route: 048
     Dates: start: 20171214
  7. CEFMENOXIME [Concomitant]
     Active Substance: CEFMENOXIME
     Route: 042
  8. LINEZOLID. [Concomitant]
     Active Substance: LINEZOLID
     Route: 065
  9. LEVOFLOXACIN. [Concomitant]
     Active Substance: LEVOFLOXACIN
     Route: 042
  10. ASARONE [Concomitant]
     Active Substance: .ALPHA.-ASARONE
     Route: 042
  11. SODIUM CHLORIDE. [Concomitant]
     Active Substance: SODIUM CHLORIDE
  12. PERAMIVIR [Concomitant]
     Active Substance: PERAMIVIR
     Route: 065
  13. TAMIFLU [Suspect]
     Active Substance: OSELTAMIVIR PHOSPHATE
     Route: 048
     Dates: start: 20171213
  14. METHYLPREDNISOLONE SODIUM SUCCINATE. [Concomitant]
     Active Substance: METHYLPREDNISOLONE SODIUM SUCCINATE
     Route: 042
  15. AMBROXOL [Concomitant]
     Active Substance: AMBROXOL
     Route: 048
  16. VANCOMYCIN [Concomitant]
     Active Substance: VANCOMYCIN
     Route: 042
     Dates: start: 20171214

REACTIONS (13)
  - Heart rate decreased [Not Recovered/Not Resolved]
  - Electrolyte imbalance [Unknown]
  - Irritability [Not Recovered/Not Resolved]
  - Myalgia [Unknown]
  - Oxygen saturation decreased [Not Recovered/Not Resolved]
  - Thrombocytopenia [Unknown]
  - Systemic inflammatory response syndrome [Unknown]
  - Leukopenia [Unknown]
  - Hepatic steatosis [Unknown]
  - Influenza A virus test positive [Fatal]
  - Abdominal distension [Unknown]
  - Dysuria [Unknown]
  - Multiple organ dysfunction syndrome [Unknown]

NARRATIVE: CASE EVENT DATE: 20171216
